FAERS Safety Report 7473459-3 (Version None)
Quarter: 2011Q2

REPORT INFORMATION
  Report Type: 
  Country: None (occurrence: None)
  Receive Date: 20110511
  Receipt Date: 20110504
  Transmission Date: 20111010
  Serious: Yes (Death, Hospitalization, Other)
  Sender: FDA-Public Use
  Company Number: GB-ASTRAZENECA-2011SE26171

PATIENT
  Age: 19 Year
  Sex: Female

DRUGS (5)
  1. SILDENAFIL CITRATE [Suspect]
     Indication: PULMONARY ARTERIAL HYPERTENSION
  2. SITAXENTAN [Suspect]
     Indication: PULMONARY ARTERIAL HYPERTENSION
  3. AMOXICILLIN [Suspect]
     Indication: EAR INFECTION
  4. OMEPRAZOLE [Suspect]
     Indication: ILL-DEFINED DISORDER
     Route: 048
  5. MOTILIUM [Suspect]

REACTIONS (2)
  - BRAIN OEDEMA [None]
  - ACUTE HEPATIC FAILURE [None]
